FAERS Safety Report 10077308 (Version 1)
Quarter: 2014Q2

REPORT INFORMATION
  Report Type: Spontaneous
  Country: US (occurrence: US)
  Receive Date: 20140414
  Receipt Date: 20140414
  Transmission Date: 20141212
  Serious: Yes (Other)
  Sender: FDA-Public Use
  Company Number: US-ROXANE LABORATORIES, INC.-2014-RO-00606RO

PATIENT
  Sex: Male

DRUGS (1)
  1. CYCLOPHOSPHAMIDE TABLETS USP [Suspect]
     Indication: PRODUCT USED FOR UNKNOWN INDICATION
     Route: 048

REACTIONS (2)
  - Cardiac failure congestive [Unknown]
  - Gastrointestinal haemorrhage [Unknown]
